FAERS Safety Report 11810592 (Version 1)
Quarter: 2015Q4

REPORT INFORMATION
  Report Type: Spontaneous
  Country: US (occurrence: US)
  Receive Date: 20151208
  Receipt Date: 20151208
  Transmission Date: 20160305
  Serious: Yes (Death)
  Sender: FDA-Public Use
  Company Number: US-SA-2015SA200964

PATIENT
  Age: 63 Year
  Sex: Male

DRUGS (4)
  1. LANTUS [Suspect]
     Active Substance: INSULIN GLARGINE
     Indication: BLOOD GLUCOSE
     Route: 065
  2. PRALUENT [Concomitant]
     Active Substance: ALIROCUMAB
     Dates: start: 20151118
  3. HUMALOG [Suspect]
     Active Substance: INSULIN LISPRO
     Indication: BLOOD GLUCOSE
     Route: 065
  4. ALIROCUMAB PREFILLED PEN [Concomitant]
     Active Substance: ALIROCUMAB
     Dates: start: 20151118

REACTIONS (4)
  - Rash [Not Recovered/Not Resolved]
  - Death [Fatal]
  - Dizziness [Not Recovered/Not Resolved]
  - Blood glucose increased [Not Recovered/Not Resolved]

NARRATIVE: CASE EVENT DATE: 20151118
